FAERS Safety Report 5881644-7 (Version None)
Quarter: 2008Q3

REPORT INFORMATION
  Report Type: 
  Country: None (occurrence: None)
  Receive Date: 20080912
  Receipt Date: 20080707
  Transmission Date: 20090109
  Serious: No
  Sender: FDA-Public Use
  Company Number: US-ABBOTT-08P-163-0461394-00

PATIENT
  Sex: Female

DRUGS (1)
  1. HUMIRA [Suspect]
     Indication: PSORIASIS
     Dosage: 2 SHOTS A MONTH, EVERY OTHER WK

REACTIONS (9)
  - CANDIDIASIS [None]
  - CONTUSION [None]
  - GINGIVAL BLEEDING [None]
  - GINGIVITIS [None]
  - HAEMATEMESIS [None]
  - PSORIASIS [None]
  - RETCHING [None]
  - VOMITING [None]
  - WEIGHT INCREASED [None]
